FAERS Safety Report 5499197-4 (Version None)
Quarter: 2007Q4

REPORT INFORMATION
  Report Type: 
  Country: None (occurrence: None)
  Receive Date: 20071026
  Receipt Date: 20071022
  Transmission Date: 20080405
  Serious: Yes (Death)
  Sender: FDA-Public Use
  Company Number: AU-AVENTIS-200714947EU

PATIENT
  Age: 64 Year
  Sex: Male

DRUGS (1)
  1. RILUTEK [Suspect]
     Route: 048
     Dates: start: 20060523

REACTIONS (1)
  - DEATH [None]
